FAERS Safety Report 10078571 (Version 3)
Quarter: 2014Q2

REPORT INFORMATION
  Report Type: Spontaneous
  Country: US (occurrence: US)
  Receive Date: 20140415
  Receipt Date: 20140522
  Transmission Date: 20141212
  Serious: No
  Sender: FDA-Public Use
  Company Number: US-009507513-1404USA006146

PATIENT
  Sex: Female

DRUGS (1)
  1. OXYTROL FOR WOMEN [Suspect]
     Indication: PRODUCT USED FOR UNKNOWN INDICATION
     Dosage: UNK, UNKNOWN
     Route: 062
     Dates: start: 201402

REACTIONS (5)
  - Constipation [Unknown]
  - Dry mouth [Not Recovered/Not Resolved]
  - Muscle twitching [Unknown]
  - Application site erythema [Recovering/Resolving]
  - Incorrect drug administration duration [Unknown]
